FAERS Safety Report 7764897-X (Version None)
Quarter: 2011Q3

REPORT INFORMATION
  Report Type: 
  Country: None (occurrence: None)
  Receive Date: 20110921
  Receipt Date: 20110919
  Transmission Date: 20111222
  Serious: Yes (Hospitalization, Other)
  Sender: FDA-Public Use
  Company Number: US-ROCHE-717513

PATIENT
  Sex: Female
  Weight: 59 kg

DRUGS (17)
  1. ACCUTANE [Suspect]
     Route: 048
     Dates: start: 20081105, end: 20090127
  2. CLARAVIS [Suspect]
     Route: 048
     Dates: start: 20040909
  3. CLARAVIS [Suspect]
     Indication: ACNE
     Route: 048
     Dates: start: 20040528
  4. CLARAVIS [Suspect]
     Route: 048
     Dates: start: 20080101
  5. CLARAVIS [Suspect]
     Route: 048
     Dates: start: 20090101
  6. SOTRET [Suspect]
     Indication: ACNE
     Route: 048
     Dates: start: 20050101
  7. MINOCYCLINE HCL [Concomitant]
     Indication: ACNE
     Route: 048
     Dates: start: 20080311, end: 20090127
  8. ACCUTANE [Suspect]
     Indication: ACNE
     Route: 048
     Dates: start: 19990922
  9. ACCUTANE [Suspect]
     Route: 048
     Dates: start: 20090317, end: 20090713
  10. SINGULAIR [Concomitant]
  11. SOTRET [Suspect]
     Route: 048
     Dates: start: 20080101
  12. ZYRTEC [Concomitant]
  13. ORTHO TRI-CYCLEN [Concomitant]
  14. ACCUTANE [Suspect]
     Route: 048
     Dates: start: 19991027, end: 20000524
  15. ACCUTANE [Suspect]
     Route: 048
     Dates: start: 20040318, end: 20040401
  16. ACCUTANE [Suspect]
     Route: 048
     Dates: start: 20081001
  17. SOTRET [Suspect]
     Route: 048
     Dates: start: 20090104, end: 20090713

REACTIONS (13)
  - CROHN'S DISEASE [None]
  - INFECTED CYST [None]
  - DRY EYE [None]
  - BLOOD CHOLESTEROL INCREASED [None]
  - PITYRIASIS ALBA [None]
  - MOOD ALTERED [None]
  - BLOOD TRIGLYCERIDES INCREASED [None]
  - IRON DEFICIENCY ANAEMIA [None]
  - INFLAMMATORY BOWEL DISEASE [None]
  - ORAL HERPES [None]
  - ANAL FISSURE [None]
  - DEPRESSION [None]
  - COLITIS [None]
